FAERS Safety Report 18071166 (Version 2)
Quarter: 2020Q4

REPORT INFORMATION
  Report Type: Spontaneous
  Country: DE (occurrence: DE)
  Receive Date: 20200727
  Receipt Date: 20201005
  Transmission Date: 20210113
  Serious: Yes (Other)
  Sender: FDA-Public Use
  Company Number: DE-DRREDDYS-GER/GER/20/0125372

PATIENT
  Age: 49 Year
  Sex: Female
  Weight: 89 kg

DRUGS (5)
  1. ZOELY [Concomitant]
     Active Substance: ESTRADIOL\NOMEGESTROL ACETATE
     Dosage: UNK
     Dates: start: 201912, end: 202006
  2. ZOELY [Concomitant]
     Active Substance: ESTRADIOL\NOMEGESTROL ACETATE
     Indication: PRODUCT USED FOR UNKNOWN INDICATION
     Dosage: UNK (MORE THAN 10 YEARS)
     Route: 065
     Dates: start: 201212, end: 201906
  3. LEVOTHYROXINE SODIUM. [Suspect]
     Active Substance: LEVOTHYROXINE SODIUM
     Indication: PRODUCT USED FOR UNKNOWN INDICATION
     Dosage: UNK, MORE THAN 10 YEARS
     Route: 065
  4. FONDAPARINUX [Concomitant]
     Active Substance: FONDAPARINUX
     Indication: PRODUCT USED FOR UNKNOWN INDICATION
     Dosage: 2.5 MG, OT
     Route: 065
  5. QLAIRA [Concomitant]
     Active Substance: DIENOGEST\ESTRADIOL VALERATE
     Indication: PRODUCT USED FOR UNKNOWN INDICATION
     Dosage: UNK
     Route: 065
     Dates: start: 201906, end: 201912

REACTIONS (6)
  - Musculoskeletal stiffness [Unknown]
  - Varicose vein [Unknown]
  - Thrombophlebitis superficial [Unknown]
  - Peripheral swelling [Unknown]
  - Deep vein thrombosis [Unknown]
  - Feeling hot [Unknown]

NARRATIVE: CASE EVENT DATE: 20200527
